FAERS Safety Report 6288311-9 (Version None)
Quarter: 2009Q3

REPORT INFORMATION
  Report Type: 
  Country: None (occurrence: None)
  Receive Date: 20090729
  Receipt Date: 20090724
  Transmission Date: 20100115
  Serious: Yes (Other)
  Sender: FDA-Public Use
  Company Number: US-PFIZER INC-2004109355

PATIENT
  Sex: Female

DRUGS (12)
  1. PROVERA [Suspect]
     Indication: HORMONE REPLACEMENT THERAPY
     Route: 048
  2. PREMARIN [Suspect]
     Indication: HORMONE REPLACEMENT THERAPY
     Dosage: 1.25 MG, UNK
     Dates: start: 19900201, end: 20040501
  3. PREMPRO [Suspect]
     Indication: HORMONE REPLACEMENT THERAPY
     Dosage: 0.625/2.5MG
  4. XANAX [Concomitant]
     Indication: NERVE INJURY
     Dosage: 0.5 MG, UNK
     Dates: start: 20000101
  5. MORPHINE SULFATE [Concomitant]
     Indication: PAIN IN EXTREMITY
     Dosage: 30 MG, UNK
     Dates: start: 19980101
  6. MORPHINE SULFATE [Concomitant]
     Indication: BACK PAIN
  7. PAMELOR [Concomitant]
     Indication: SLEEP DISORDER
     Dosage: 50 MG, UNK
     Dates: start: 19960101
  8. FOSAMAX [Concomitant]
     Indication: OSTEOPOROSIS
     Dosage: UNK
     Dates: start: 19960101
  9. CELEBREX [Concomitant]
     Indication: ARTHRITIS
     Dosage: 200 MG, UNK
     Dates: start: 19930101
  10. LORTAB [Concomitant]
     Indication: PAIN
     Dosage: UNK
     Dates: start: 19871001, end: 20040601
  11. NORTRIPTYLINE [Concomitant]
     Indication: DEPRESSION
     Dosage: UNK
     Dates: start: 19931001
  12. ORAMORPH SR [Concomitant]
     Indication: PAIN
     Dosage: UNK
     Dates: start: 19990101, end: 20040302

REACTIONS (1)
  - OVARIAN CANCER [None]
